FAERS Safety Report 8530647-2 (Version None)
Quarter: 2012Q3

REPORT INFORMATION
  Report Type: 
  Country: None (occurrence: None)
  Receive Date: 20120723
  Receipt Date: 20120720
  Transmission Date: 20120928
  Serious: Yes (Hospitalization)
  Sender: FDA-Public Use
  Company Number: ES-ROCHE-1049468

PATIENT
  Sex: Female

DRUGS (2)
  1. PERTUZUMAB [Suspect]
     Indication: BREAST CANCER
     Dosage: DATE OS LAST DOSE PRIOR TO SAE, 01/MAR/2012
     Route: 042
     Dates: start: 20110701
  2. TRASTUZUMAB EMTANSINE [Suspect]
     Indication: BREAST CANCER
     Dosage: DATE OS LAST DOSE PRIOR TO SAE, 01/MAR/2012
     Route: 042
     Dates: start: 20110701

REACTIONS (2)
  - ENCEPHALOPATHY [None]
  - COGNITIVE DISORDER [None]
